FAERS Safety Report 8277011-1 (Version None)
Quarter: 2012Q2

REPORT INFORMATION
  Report Type: 
  Country: None (occurrence: None)
  Receive Date: 20120412
  Receipt Date: 20120402
  Transmission Date: 20120825
  Serious: Yes (Other)
  Sender: FDA-Public Use
  Company Number: CA-ROCHE-1056139

PATIENT
  Sex: Male
  Weight: 79 kg

DRUGS (9)
  1. METHOTREXATE [Concomitant]
  2. LANSOPRAZOLE [Concomitant]
  3. ACTONEL [Concomitant]
  4. FOLIC ACID [Concomitant]
  5. VITAMIN D [Concomitant]
  6. CALCIUM CARBONATE [Concomitant]
  7. ACTEMRA [Suspect]
     Indication: RHEUMATOID ARTHRITIS
     Route: 042
     Dates: start: 20120104
  8. ACTEMRA [Suspect]
     Dates: start: 20120330
  9. PREDNISONE TAB [Concomitant]

REACTIONS (1)
  - WEIGHT INCREASED [None]
